FAERS Safety Report 5269676-3 (Version None)
Quarter: 2007Q1

REPORT INFORMATION
  Report Type: 
  Country: None (occurrence: None)
  Receive Date: 20070320
  Receipt Date: 20070307
  Transmission Date: 20070707
  Serious: Yes (Disabling)
  Sender: FDA-Public Use
  Company Number: PHBS2007NO03246

PATIENT
  Age: 41 Year
  Sex: Male

DRUGS (11)
  1. LESCOL [Suspect]
     Indication: HYPERCHOLESTEROLAEMIA
     Dosage: 40 MG, QD
     Route: 048
     Dates: start: 20030901, end: 20031001
  2. LESCOL [Suspect]
     Dosage: UNK, UNK
     Dates: start: 20031021, end: 20040113
  3. LIPITOR [Suspect]
     Indication: HYPERCHOLESTEROLAEMIA
     Dosage: 20 MG, QD
     Route: 048
     Dates: start: 19980101, end: 20030901
  4. MEVACOR [Suspect]
     Indication: HYPERCHOLESTEROLAEMIA
     Dosage: 20 MG, QD
     Route: 048
     Dates: start: 20031001, end: 20031001
  5. ZOCOR [Suspect]
     Indication: HYPERCHOLESTEROLAEMIA
     Dosage: 10 MG, QD
     Route: 048
     Dates: start: 19930901, end: 19960601
  6. ZOCOR [Suspect]
     Dosage: 40 MG, QD
     Route: 048
     Dates: start: 19960601, end: 19980101
  7. EZETROL [Concomitant]
     Indication: HYPERCHOLESTEROLAEMIA
     Dates: start: 20040101
  8. SELO-ZOK [Concomitant]
     Dates: start: 19950201, end: 19980201
  9. ALBYT-E [Concomitant]
     Dosage: 160 MG, QD
     Route: 048
     Dates: start: 19940101
  10. SORBANGIL [Concomitant]
     Dosage: 10 MG, QD
     Route: 048
     Dates: start: 19940101
  11. KREDEX [Concomitant]
     Route: 048
     Dates: start: 19980201

REACTIONS (4)
  - DISTURBANCE IN ATTENTION [None]
  - HEADACHE [None]
  - MYALGIA [None]
  - NERVOUS SYSTEM DISORDER [None]
